FAERS Safety Report 8360785-9 (Version None)
Quarter: 2012Q2

REPORT INFORMATION
  Report Type: 
  Country: None (occurrence: None)
  Receive Date: 20120515
  Receipt Date: 20120514
  Transmission Date: 20120825
  Serious: Yes (Disabling)
  Sender: FDA-Public Use
  Company Number: US-PFIZER INC-2012016315

PATIENT
  Sex: Male
  Weight: 90.703 kg

DRUGS (5)
  1. LIPITOR [Suspect]
     Indication: BLOOD CHOLESTEROL INCREASED
     Dosage: 20 MG, DAILY
     Route: 048
  2. DOXAZOSIN [Concomitant]
     Indication: PROSTATIC DISORDER
     Dosage: 2 MG, 1X/DAY
  3. ASPIRIN [Concomitant]
     Indication: CARDIAC DISORDER
     Dosage: 385 MG, 1X/DAY
  4. TRICOR [Concomitant]
     Indication: BLOOD CHOLESTEROL INCREASED
     Dosage: 145 MG, 1X/DAY
     Route: 048
  5. ZOCOR [Suspect]
     Indication: BLOOD CHOLESTEROL INCREASED
     Dosage: 40 MG, 1X/DAY

REACTIONS (2)
  - BLADDER DISORDER [None]
  - INSOMNIA [None]
